FAERS Safety Report 22041661 (Version 1)
Quarter: 2023Q1

REPORT INFORMATION
  Report Type: Spontaneous
  Country: US (occurrence: None)
  Receive Date: 20230224
  Receipt Date: 20230224
  Transmission Date: 20230418
  Serious: Yes (Hospitalization)
  Sender: FDA-Public Use
  Company Number: None

PATIENT
  Sex: Male
  Weight: 58.06 kg

DRUGS (5)
  1. SORAFENIB [Suspect]
     Active Substance: SORAFENIB
     Indication: Hepatic cancer
     Dosage: 200MG TWICE DILY ORAL?
     Route: 048
  2. ATORVASTATIN [Concomitant]
     Active Substance: ATORVASTATIN
  3. ENALAPRIL [Concomitant]
     Active Substance: ENALAPRIL
  4. FAMOTIDINE [Concomitant]
     Active Substance: FAMOTIDINE
  5. NICOTROL [Concomitant]
     Active Substance: NICOTINE

REACTIONS (4)
  - Hypersensitivity [None]
  - Cardiac disorder [None]
  - Heart rate increased [None]
  - Fatigue [None]
